FAERS Safety Report 25851003 (Version 3)
Quarter: 2025Q4

REPORT INFORMATION
  Report Type: Report from Study
  Country: US (occurrence: US)
  Receive Date: 20250926
  Receipt Date: 20251010
  Transmission Date: 20260118
  Serious: Yes (Other)
  Sender: UCB
  Company Number: US-UCBSA-2025059749

PATIENT
  Age: 14 Year
  Sex: Male
  Weight: 31.8 kg

DRUGS (3)
  1. FINTEPLA [Suspect]
     Active Substance: FENFLURAMINE
     Indication: Severe myoclonic epilepsy of infancy
     Dosage: 8.8 MILLIGRAM PER DAY
     Dates: start: 20210119
  2. FINTEPLA [Suspect]
     Active Substance: FENFLURAMINE
     Dosage: 10.56 MILLIGRAM PER DAY
  3. FINTEPLA [Suspect]
     Active Substance: FENFLURAMINE
     Dosage: 2.4 MILLILITER, 2X/DAY (BID)
     Route: 048

REACTIONS (2)
  - Tricuspid valve incompetence [Unknown]
  - Ventricular hypokinesia [Unknown]

NARRATIVE: CASE EVENT DATE: 20230810
